FAERS Safety Report 23214208 (Version 1)
Quarter: 2023Q4

REPORT INFORMATION
  Report Type: Spontaneous
  Country: US (occurrence: US)
  Receive Date: 20231121
  Receipt Date: 20231121
  Transmission Date: 20240110
  Serious: No
  Sender: FDA-Public Use
  Company Number: US-PFIZER INC-PV202300188277

PATIENT
  Age: 76 Year
  Sex: Female

DRUGS (1)
  1. TRAZIMERA [Suspect]
     Active Substance: TRASTUZUMAB-QYYP
     Dosage: 105 MG

REACTIONS (5)
  - Diarrhoea [Unknown]
  - Headache [Unknown]
  - Asthenia [Unknown]
  - Nausea [Unknown]
  - Laboratory test abnormal [Unknown]

NARRATIVE: CASE EVENT DATE: 20231114
